FAERS Safety Report 5190893-5 (Version None)
Quarter: 2006Q4

REPORT INFORMATION
  Report Type: 
  Country: None (occurrence: None)
  Receive Date: 20061222
  Receipt Date: 20061011
  Transmission Date: 20070319
  Serious: Yes (Hospitalization, Other)
  Sender: FDA-Public Use
  Company Number: US-ELI_LILLY_AND_COMPANY-US200610002173

PATIENT
  Age: 54 Year
  Sex: Male

DRUGS (6)
  1. ZYPREXA [Suspect]
     Indication: SCHIZOPHRENIA
     Dosage: 15 MG, UNK
     Route: 048
     Dates: start: 20010101
  2. ZYPREXA [Suspect]
     Dosage: 5 MG, EACH EVENING
     Route: 048
     Dates: end: 20061005
  3. PERPHENAZINE [Concomitant]
  4. ATIVAN [Concomitant]
     Dosage: 2 MG, UNK
  5. VITAMINS [Concomitant]
  6. ANTIHYPERTENSIVES [Concomitant]

REACTIONS (8)
  - ANGINA PECTORIS [None]
  - DYSARTHRIA [None]
  - FALL [None]
  - GAIT DISTURBANCE [None]
  - GLUCOSE TOLERANCE IMPAIRED [None]
  - HEART RATE INCREASED [None]
  - INCREASED APPETITE [None]
  - MYOCARDIAL INFARCTION [None]
